FAERS Safety Report 5208318-X (Version None)
Quarter: 2007Q1

REPORT INFORMATION
  Report Type: 
  Country: None (occurrence: None)
  Receive Date: 20070110
  Receipt Date: 20070110
  Transmission Date: 20070707
  Serious: Yes (Hospitalization)
  Sender: FDA-Public Use
  Company Number: None

PATIENT
  Age: 59 Year
  Sex: Male

DRUGS (10)
  1. REVLIMID [Suspect]
     Indication: MULTIPLE MYELOMA
     Dosage: 25MG DAILY 21D/28D PO
     Route: 048
  2. PROCRIT [Concomitant]
  3. DEXAMETHASONE [Concomitant]
  4. CEPHALEXIN [Concomitant]
  5. MAG-OX [Concomitant]
  6. WARFARIN SODIUM [Concomitant]
  7. MORPHINE SULFATE [Concomitant]
  8. OMEPRAZOLE [Concomitant]
  9. GABAPENTIN [Concomitant]
  10. AREDIA [Concomitant]

REACTIONS (1)
  - PYREXIA [None]
